FAERS Safety Report 6535342-7 (Version None)
Quarter: 2010Q1

REPORT INFORMATION
  Report Type: 
  Country: None (occurrence: None)
  Receive Date: 20100113
  Receipt Date: 20091228
  Transmission Date: 20100710
  Serious: Yes (Hospitalization)
  Sender: FDA-Public Use
  Company Number: IT-JNJFOC-20091205586

PATIENT
  Sex: Male

DRUGS (6)
  1. CONTRAMAL [Suspect]
     Indication: DRUG USE FOR UNKNOWN INDICATION
     Route: 048
  2. XERISTAR [Interacting]
     Indication: DRUG USE FOR UNKNOWN INDICATION
     Route: 048
  3. LAMICTAL [Concomitant]
     Route: 048
  4. TEGRETOL [Concomitant]
     Route: 048
  5. RIVOTRIL [Concomitant]
     Route: 048
  6. TRANSTEC [Concomitant]
     Route: 062

REACTIONS (7)
  - ACCIDENTAL OVERDOSE [None]
  - ASTHENIA [None]
  - DRUG ADMINISTRATION ERROR [None]
  - DRUG INTERACTION [None]
  - NAUSEA [None]
  - SEROTONIN SYNDROME [None]
  - VOMITING [None]
